FAERS Safety Report 18077777 (Version 3)
Quarter: 2023Q2

REPORT INFORMATION
  Report Type: Spontaneous
  Country: CA (occurrence: CA)
  Receive Date: 20200727
  Receipt Date: 20230405
  Transmission Date: 20230722
  Serious: Yes (Hospitalization, Other)
  Sender: FDA-Public Use
  Company Number: CA-009507513-2007CAN008604

PATIENT
  Age: 33 Year
  Sex: Male
  Weight: 108 kg

DRUGS (1)
  1. KEYTRUDA [Suspect]
     Active Substance: PEMBROLIZUMAB
     Indication: Diffuse large B-cell lymphoma refractory
     Dosage: 200 MILLIGRAM, 1 EVERY 3 WEEKS
     Route: 042

REACTIONS (8)
  - Anxiety [Unknown]
  - Cardiac neoplasm unspecified [Unknown]
  - Depression [Unknown]
  - Dysphagia [Unknown]
  - Salivary gland neoplasm [Unknown]
  - General physical health deterioration [Unknown]
  - Fatigue [Unknown]
  - Dyspnoea [Unknown]

NARRATIVE: CASE EVENT DATE: 20200101
